FAERS Safety Report 4594165-9 (Version None)
Quarter: 2005Q1

REPORT INFORMATION
  Report Type: 
  Country: None (occurrence: None)
  Receive Date: 20050301
  Receipt Date: 20050228
  Transmission Date: 20050727
  Serious: Yes (Death)
  Sender: FDA-Public Use
  Company Number: USA050289729

PATIENT
  Age: 70 Year
  Sex: Male

DRUGS (2)
  1. AVANDIA [Suspect]
     Indication: DIABETES MELLITUS
     Route: 065
     Dates: start: 20040101, end: 20040501
  2. ACTOS [Suspect]
     Indication: DIABETES MELLITUS
     Route: 065
     Dates: end: 20040501

REACTIONS (2)
  - CARDIAC FAILURE CONGESTIVE [None]
  - FEELING ABNORMAL [None]
